FAERS Safety Report 19398127 (Version 1)
Quarter: 2021Q2

REPORT INFORMATION
  Report Type: Spontaneous
  Country: SA (occurrence: SA)
  Receive Date: 20210610
  Receipt Date: 20210610
  Transmission Date: 20210717
  Serious: Yes (Life-Threatening, Other)
  Sender: FDA-Public Use
  Company Number: SA-PFIZER INC-2021651487

PATIENT
  Age: 9 Year
  Sex: Female

DRUGS (4)
  1. VORICONAZOLE. [Suspect]
     Active Substance: VORICONAZOLE
     Indication: SOFT TISSUE INFECTION
     Dosage: 8 MG/KG, 2X/DAY
     Route: 048
  2. VORICONAZOLE. [Suspect]
     Active Substance: VORICONAZOLE
     Indication: PSEUDALLESCHERIA INFECTION
  3. AMBISOME [Concomitant]
     Active Substance: AMPHOTERICIN B
     Indication: SOFT TISSUE INFECTION
     Dosage: 5 MG/KG, DAILY
     Route: 042
  4. AMBISOME [Concomitant]
     Active Substance: AMPHOTERICIN B
     Indication: PSEUDALLESCHERIA INFECTION

REACTIONS (1)
  - Rhabdomyolysis [Recovered/Resolved]
